FAERS Safety Report 22354371 (Version 1)
Quarter: 2023Q2

REPORT INFORMATION
  Report Type: Report from Study
  Country: US (occurrence: None)
  Receive Date: 20230523
  Receipt Date: 20230523
  Transmission Date: 20230722
  Serious: Yes (Hospitalization)
  Sender: FDA-Public Use
  Company Number: US-ROCHE-3352787

PATIENT
  Age: 75 Year
  Sex: Female
  Weight: 68.7 kg

DRUGS (13)
  1. COBIMETINIB [Suspect]
     Active Substance: COBIMETINIB
     Indication: Chronic myelomonocytic leukaemia
     Route: 048
     Dates: start: 20230427, end: 20230430
  2. TYLENOL [Concomitant]
     Active Substance: ACETAMINOPHEN
     Dates: start: 20230429
  3. BENADRYL [Concomitant]
     Active Substance: DIPHENHYDRAMINE HYDROCHLORIDE
     Dates: start: 20230429
  4. ONDANSETRON [Concomitant]
     Active Substance: ONDANSETRON
     Dates: start: 20230503
  5. VANCOMYCIN [Concomitant]
     Active Substance: VANCOMYCIN
     Dates: start: 20230503
  6. CEFEPIME [Concomitant]
     Active Substance: CEFEPIME HYDROCHLORIDE
     Dates: start: 20230502
  7. FENTANYL [Concomitant]
     Active Substance: FENTANYL
     Dates: start: 20230502
  8. IOPAMIDOL [Concomitant]
     Active Substance: IOPAMIDOL
     Dates: start: 20230502
  9. LACTOBACILLUS ACIDOPHILUS [Concomitant]
     Active Substance: LACTOBACILLUS ACIDOPHILUS
     Dates: start: 20230503
  10. PANTOPRAZOLE [Concomitant]
     Active Substance: PANTOPRAZOLE
     Dates: start: 20230503
  11. NALOXONE [Concomitant]
     Active Substance: NALOXONE
     Dates: start: 20230503
  12. MORPHINE [Concomitant]
     Active Substance: MORPHINE
     Dates: start: 20230503
  13. OXYCODONE [Concomitant]
     Active Substance: OXYCODONE
     Dates: start: 20230503

REACTIONS (1)
  - Cellulitis [Recovered/Resolved with Sequelae]

NARRATIVE: CASE EVENT DATE: 20230502
